FAERS Safety Report 16255731 (Version 2)
Quarter: 2019Q2

REPORT INFORMATION
  Report Type: Spontaneous
  Country: US (occurrence: US)
  Receive Date: 20190430
  Receipt Date: 20190506
  Transmission Date: 20190711
  Serious: Yes (Life-Threatening, Hospitalization, Other)
  Sender: FDA-Public Use
  Company Number: US-PFIZER INC-2019182045

PATIENT
  Age: 35 Year
  Sex: Female

DRUGS (2)
  1. OXYCODONE [Suspect]
     Active Substance: OXYCODONE
     Dosage: UNK
  2. FENTANYL CITRATE. [Suspect]
     Active Substance: FENTANYL CITRATE
     Dosage: UNK

REACTIONS (10)
  - Nausea [Unknown]
  - Drug withdrawal syndrome [Recovering/Resolving]
  - Cardiac failure [Recovering/Resolving]
  - Disease recurrence [Recovering/Resolving]
  - Drug abuse [Recovering/Resolving]
  - Hyperhidrosis [Unknown]
  - Cardiogenic shock [Recovering/Resolving]
  - Vomiting [Unknown]
  - Stress cardiomyopathy [Recovering/Resolving]
  - Diarrhoea [Unknown]
